FAERS Safety Report 8435212-3 (Version None)
Quarter: 2012Q2

REPORT INFORMATION
  Report Type: 
  Country: None (occurrence: None)
  Receive Date: 20120614
  Receipt Date: 20120606
  Transmission Date: 20120825
  Serious: Yes (Other)
  Sender: FDA-Public Use
  Company Number: JP-ASTELLAS-2012JP005192

PATIENT
  Age: 5 Year
  Sex: Female

DRUGS (1)
  1. PROGRAF [Suspect]
     Route: 048

REACTIONS (2)
  - CATARACT [None]
  - OFF LABEL USE [None]
